FAERS Safety Report 7519381-5 (Version None)
Quarter: 2011Q2

REPORT INFORMATION
  Report Type: 
  Country: None (occurrence: None)
  Receive Date: 20110602
  Receipt Date: 20110523
  Transmission Date: 20111010
  Serious: Yes (Hospitalization)
  Sender: FDA-Public Use
  Company Number: PHHY2011CA43888

PATIENT
  Age: 16 Year
  Sex: Female

DRUGS (5)
  1. RISPERIDONE [Suspect]
     Dosage: 4.5 MG, UNK
  2. RISPERIDONE [Suspect]
     Dosage: 1 MG, PRN
  3. CITALOPRAM HYDROBROMIDE [Suspect]
     Dosage: 50 MG, UNK
  4. RISPERIDONE [Suspect]
     Dosage: 2.25 MG, UNK
  5. CITALOPRAM HYDROBROMIDE [Suspect]
     Dosage: 10 MG, UNK

REACTIONS (16)
  - MOVEMENT DISORDER [None]
  - CHOREOATHETOSIS [None]
  - STRESS [None]
  - DYSKINESIA [None]
  - MUSCLE TWITCHING [None]
  - INSOMNIA [None]
  - ANXIETY [None]
  - CONTUSION [None]
  - HALLUCINATION, AUDITORY [None]
  - SUICIDAL IDEATION [None]
  - TORTICOLLIS [None]
  - DYSTONIA [None]
  - WEIGHT DECREASED [None]
  - MUSCLE DISORDER [None]
  - CACHEXIA [None]
  - ARTHROPATHY [None]
